FAERS Safety Report 10083740 (Version 2)
Quarter: 2014Q2

REPORT INFORMATION
  Report Type: Spontaneous
  Country: FR (occurrence: FR)
  Receive Date: 20140417
  Receipt Date: 20140429
  Transmission Date: 20141212
  Serious: Yes (Hospitalization)
  Sender: FDA-Public Use
  Company Number: PHHY2014FR044269

PATIENT
  Age: 52 Year
  Sex: Male

DRUGS (5)
  1. TASIGNA [Suspect]
     Indication: ACUTE LYMPHOCYTIC LEUKAEMIA
     Dosage: UNK
     Route: 048
     Dates: end: 201403
  2. TASIGNA [Suspect]
     Indication: OFF LABEL USE
  3. METFORMIN [Concomitant]
     Dosage: UNK
  4. TAHOR [Concomitant]
     Dosage: UNK
     Route: 048
  5. TWYNSTA [Concomitant]
     Dosage: UNK
     Route: 048

REACTIONS (3)
  - Arterial thrombosis [Recovered/Resolved]
  - Venous thrombosis [Recovered/Resolved]
  - Pulmonary embolism [Recovered/Resolved]
